FAERS Safety Report 5204430-X (Version None)
Quarter: 2007Q1

REPORT INFORMATION
  Report Type: 
  Country: None (occurrence: None)
  Receive Date: 20070110
  Receipt Date: 20060209
  Transmission Date: 20070707
  Serious: No
  Sender: FDA-Public Use
  Company Number: US-BRISTOL-MYERS SQUIBB COMPANY-13323720

PATIENT
  Age: 4 Decade
  Sex: Male

DRUGS (1)
  1. ABILIFY [Suspect]
     Dosage: DOSAGE: 15 MG DAILY OR 20 MG DAILY
     Route: 048

REACTIONS (1)
  - RASH [None]
